FAERS Safety Report 8456169-5 (Version None)
Quarter: 2012Q2

REPORT INFORMATION
  Report Type: 
  Country: None (occurrence: None)
  Receive Date: 20120323
  Receipt Date: 20110824
  Transmission Date: 20120825
  Serious: Yes (Hospitalization)
  Sender: FDA-Public Use
  Company Number: 163-21880-11083005

PATIENT
  Age: 51 Year
  Sex: Female

DRUGS (19)
  1. CYMBALTA [Concomitant]
  2. HYDROMORPHONE HCL [Concomitant]
  3. LANTUS [Concomitant]
  4. METFFORMIN HYDROCHLORIDE [Concomitant]
  5. LEVOTHYROXINE SODIUM [Concomitant]
  6. ALPRAZOLAM [Concomitant]
  7. VELCADE [Concomitant]
  8. DEXAMETHASONE (DEXAMETHASONE) [Concomitant]
  9. LOVENOX [Concomitant]
  10. ZEGERID (OMEPRAZOLE) [Concomitant]
  11. GABAPENTIN [Concomitant]
  12. OPANA [Concomitant]
  13. CARISOPRODOL [Concomitant]
  14. REVLIMID [Suspect]
     Indication: MULTIPLE MYELOMA
     Dosage: 25 MG, DAILY ON DAYS 1-21 OF 28 DAYS, PO
     Route: 048
     Dates: start: 20110501
  15. ACYCLOVIR [Concomitant]
  16. HUMALOG [Concomitant]
  17. ZOFRAN [Concomitant]
  18. BENAZEPRIL HYDROCHLORIDE [Concomitant]
  19. CHLORPROMAZINE [Concomitant]

REACTIONS (1)
  - INFECTION [None]
